FAERS Safety Report 5797145-0 (Version None)
Quarter: 2008Q3

REPORT INFORMATION
  Report Type: 
  Country: None (occurrence: None)
  Receive Date: 20080701
  Receipt Date: 20080624
  Transmission Date: 20090109
  Serious: Yes (Hospitalization)
  Sender: FDA-Public Use
  Company Number: PHBS2008JP04659

PATIENT
  Age: 35 Year
  Sex: Female

DRUGS (7)
  1. CARBAMAZEPINE [Suspect]
     Dosage: 400 MG/DAY
     Route: 065
  2. BACLOFEN [Suspect]
     Dosage: 30 MG/DAY
     Route: 065
  3. AMITRIPTYLINE HCL [Suspect]
     Dosage: 100 MG/DAY
     Route: 065
  4. PEROSPIRONE [Suspect]
     Dosage: 8 MG/DAY
     Route: 065
  5. BENZODIAZEPINES [Suspect]
     Route: 065
  6. PAROXETINE HCL [Suspect]
     Indication: DEPRESSIVE SYMPTOM
     Route: 065
  7. HEMODIALYSIS [Concomitant]
     Dosage: BIW

REACTIONS (12)
  - ALTERED STATE OF CONSCIOUSNESS [None]
  - ANOREXIA [None]
  - ELECTROENCEPHALOGRAM ABNORMAL [None]
  - FATIGUE [None]
  - HYPERGLYCAEMIA [None]
  - HYPERHIDROSIS [None]
  - INSOMNIA [None]
  - MYDRIASIS [None]
  - MYOCLONUS [None]
  - RENAL DISORDER [None]
  - SEROTONIN SYNDROME [None]
  - SOMNOLENCE [None]
